FAERS Safety Report 6736002-X (Version None)
Quarter: 2010Q2

REPORT INFORMATION
  Report Type: 
  Country: None (occurrence: None)
  Receive Date: 20100521
  Receipt Date: 20100510
  Transmission Date: 20101027
  Serious: Yes (Other)
  Sender: FDA-Public Use
  Company Number: TR-ELI_LILLY_AND_COMPANY-TR201005003850

PATIENT
  Age: 38 Year
  Sex: Female

DRUGS (5)
  1. HUMALOG [Suspect]
     Indication: GESTATIONAL DIABETES
     Dosage: UNK UNK, 3/D
     Route: 058
     Dates: start: 20100302
  2. HUMALOG [Suspect]
     Dosage: 12 IU AT NOON
     Route: 058
     Dates: start: 20100302
  3. HUMALOG [Suspect]
     Dosage: 16 IU, EACH EVENING
     Route: 058
     Dates: start: 20100302
  4. HUMULIN N [Suspect]
     Indication: GESTATIONAL DIABETES
     Dosage: 12 U, DAILY (1/D)
     Route: 058
     Dates: start: 20100302
  5. IRON [Concomitant]
     Dosage: UNK UNK, DAILY (1/D)
     Route: 048
     Dates: start: 20100310

REACTIONS (2)
  - DRUG EXPOSURE DURING PREGNANCY [None]
  - HEPATITIS [None]
